FAERS Safety Report 4272627-1 (Version None)
Quarter: 2004Q1

REPORT INFORMATION
  Report Type: 
  Country: None (occurrence: None)
  Receive Date: 20040114
  Receipt Date: 20040114
  Transmission Date: 20041129
  Serious: Yes (Other)
  Sender: FDA-Public Use
  Company Number: None

PATIENT
  Age: 68 Year
  Sex: Male
  Weight: 78.0187 kg

DRUGS (4)
  1. VANCOMYCIN [Suspect]
     Indication: ENDOCARDITIS ENTEROCOCCAL
     Dosage: 1 G IV Q 12 HOURS
     Route: 042
     Dates: start: 20031222, end: 20031224
  2. VANCOMYCIN [Suspect]
     Dosage: 1 G IV Q 18 HOURS
     Route: 042
     Dates: start: 20031224, end: 20031230
  3. VANCOMYCIN [Suspect]
     Dosage: 1500 MG IV Q 21 HOURS
     Route: 042
     Dates: start: 20031230, end: 20040119
  4. ZOSYN [Concomitant]

REACTIONS (1)
  - NEUTROPENIA [None]
